FAERS Safety Report 15699933 (Version 3)
Quarter: 2019Q4

REPORT INFORMATION
  Report Type: Report from Study
  Country: DE (occurrence: DE)
  Receive Date: 20181207
  Receipt Date: 20191004
  Transmission Date: 20200122
  Serious: Yes (Hospitalization)
  Sender: FDA-Public Use
  Company Number: DE-JNJFOC-20181139604

PATIENT
  Age: 70 Year
  Sex: Female
  Weight: 79 kg

DRUGS (18)
  1. NEBIVOLOL. [Concomitant]
     Active Substance: NEBIVOLOL
     Indication: TACHYCARDIA
     Dosage: DOSAGE 2.5
     Dates: start: 201810
  2. DYMISTA [Concomitant]
     Active Substance: AZELASTINE HYDROCHLORIDE\FLUTICASONE PROPIONATE
  3. CETIRIZINE                         /00884302/ [Concomitant]
     Active Substance: CETIRIZINE HYDROCHLORIDE
     Indication: HYPERSENSITIVITY
     Route: 065
  4. VIANI [Concomitant]
     Active Substance: FLUTICASONE PROPIONATE\SALMETEROL XINAFOATE
     Route: 065
  5. EZETIMIBE. [Concomitant]
     Active Substance: EZETIMIBE
  6. PROPAFENONE HYDROCHLORIDE. [Concomitant]
     Active Substance: PROPAFENONE HYDROCHLORIDE
  7. COLCHICINE. [Concomitant]
     Active Substance: COLCHICINE
     Route: 065
     Dates: start: 201810
  8. VOLTAREN RESINAT                   /00372305/ [Concomitant]
     Active Substance: DICLOFENAC
  9. RYTMONORM [Concomitant]
     Active Substance: PROPAFENONE
  10. LIXIANA [Concomitant]
     Active Substance: EDOXABAN TOSYLATE
     Route: 048
  11. SALMETEROL [Concomitant]
     Active Substance: SALMETEROL
     Indication: ASTHMA
  12. PANTOZOL [Concomitant]
     Active Substance: PANTOPRAZOLE SODIUM
     Dosage: DOSAGE 20
     Route: 048
     Dates: start: 201810
  13. SALBUTAMOL [Concomitant]
     Active Substance: ALBUTEROL
     Indication: ASTHMA
     Route: 065
     Dates: start: 201810
  14. ESTREVA [Concomitant]
     Active Substance: ESTRADIOL
  15. TRAMADOL. [Concomitant]
     Active Substance: TRAMADOL
  16. STELARA [Suspect]
     Active Substance: USTEKINUMAB
     Indication: PSORIASIS
     Route: 058
     Dates: start: 20130228
  17. SIMVASTATIN. [Concomitant]
     Active Substance: SIMVASTATIN
     Dosage: DOSAGE 60
     Route: 048
     Dates: start: 201810
  18. EZETROL [Concomitant]
     Active Substance: EZETIMIBE

REACTIONS (1)
  - Atrial fibrillation [Not Recovered/Not Resolved]

NARRATIVE: CASE EVENT DATE: 20181002
